FAERS Safety Report 4590467-0 (Version None)
Quarter: 2005Q1

REPORT INFORMATION
  Report Type: 
  Country: None (occurrence: None)
  Receive Date: 20050224
  Receipt Date: 20050201
  Transmission Date: 20050727
  Serious: Yes (Death)
  Sender: FDA-Public Use
  Company Number: US-BRISTOL-MYERS SQUIBB COMPANY-12845723

PATIENT
  Age: 36 Year
  Sex: Female
  Weight: 170 kg

DRUGS (4)
  1. ABILIFY [Suspect]
     Indication: SCHIZOPHRENIA
     Route: 048
     Dates: start: 20030221
  2. BUSPIRONE [Concomitant]
  3. WELLBUTRIN SR [Concomitant]
  4. AMBIEN [Concomitant]
     Indication: SLEEP DISORDER
     Dosage: 5-10 MG AT BEDTIME AS NEEDED

REACTIONS (3)
  - DIABETIC KETOACIDOSIS [None]
  - MALAISE [None]
  - NAUSEA [None]
